FAERS Safety Report 6113622-7 (Version None)
Quarter: 2009Q1

REPORT INFORMATION
  Report Type: 
  Country: None (occurrence: None)
  Receive Date: 20090312
  Receipt Date: 20090304
  Transmission Date: 20090719
  Serious: Yes (Other)
  Sender: FDA-Public Use
  Company Number: FR-ABBOTT-09P-056-0560311-00

PATIENT
  Age: 47 Year
  Sex: Female

DRUGS (3)
  1. ADALIMUMAB [Suspect]
     Indication: RHEUMATOID ARTHRITIS
     Dosage: NOT REPORTED
  2. METHOTREXATE [Concomitant]
     Indication: RHEUMATOID ARTHRITIS
     Dosage: NOT REPORTED
  3. PREDNISONE [Concomitant]
     Indication: RHEUMATOID ARTHRITIS
     Dosage: NOT REPORTED

REACTIONS (5)
  - CLONUS [None]
  - DEMYELINATION [None]
  - GRAND MAL CONVULSION [None]
  - INFLAMMATION [None]
  - LOSS OF CONSCIOUSNESS [None]
